FAERS Safety Report 22187593 (Version 1)
Quarter: 2023Q2

REPORT INFORMATION
  Report Type: Spontaneous
  Country: US (occurrence: US)
  Receive Date: 20230407
  Receipt Date: 20230407
  Transmission Date: 20230722
  Serious: Yes (Hospitalization)
  Sender: FDA-Public Use
  Company Number: US-GILEAD-2023-0623000

PATIENT
  Sex: Male

DRUGS (1)
  1. YESCARTA [Suspect]
     Active Substance: AXICABTAGENE CILOLEUCEL
     Indication: Follicular lymphoma
     Route: 065

REACTIONS (5)
  - Blood urine present [Unknown]
  - Haematuria [Unknown]
  - Infection [Unknown]
  - Pyrexia [Unknown]
  - Physical deconditioning [Unknown]
